FAERS Safety Report 8512776-2 (Version None)
Quarter: 2012Q3

REPORT INFORMATION
  Report Type: 
  Country: None (occurrence: None)
  Receive Date: 20120716
  Receipt Date: 20120703
  Transmission Date: 20120928
  Serious: No
  Sender: FDA-Public Use
  Company Number: US-ASTRAZENECA-2010SE37939

PATIENT
  Age: 54 Year
  Sex: Female

DRUGS (3)
  1. ZOMIG [Suspect]
     Route: 045
  2. ZOMIG [Suspect]
     Route: 048
  3. NEXIUM [Suspect]
     Route: 048

REACTIONS (4)
  - BURNING SENSATION [None]
  - MALAISE [None]
  - SKIN BURNING SENSATION [None]
  - INFLUENZA LIKE ILLNESS [None]
